FAERS Safety Report 8183564-4 (Version None)
Quarter: 2012Q1

REPORT INFORMATION
  Report Type: 
  Country: None (occurrence: None)
  Receive Date: 20120305
  Receipt Date: 20120224
  Transmission Date: 20120608
  Serious: Yes (Other)
  Sender: FDA-Public Use
  Company Number: US-JNJFOC-20120212870

PATIENT
  Age: 63 Year
  Sex: Female

DRUGS (1)
  1. SIMPONI [Suspect]
     Indication: RHEUMATOID ARTHRITIS
     Route: 058
     Dates: start: 20111103

REACTIONS (5)
  - OEDEMA PERIPHERAL [None]
  - DYSPNOEA [None]
  - TREMOR [None]
  - DIARRHOEA [None]
  - HEADACHE [None]
